FAERS Safety Report 24575165 (Version 2)
Quarter: 2024Q4

REPORT INFORMATION
  Report Type: Spontaneous
  Country: US (occurrence: US)
  Receive Date: 20241104
  Receipt Date: 20241104
  Transmission Date: 20250115
  Serious: Yes (Hospitalization)
  Sender: ROCHE
  Company Number: US-ROCHE-10000121718

PATIENT
  Age: 81 Year
  Sex: Female

DRUGS (1)
  1. ACTEMRA ACTPEN [Suspect]
     Active Substance: TOCILIZUMAB
     Indication: Rheumatoid arthritis
     Route: 058

REACTIONS (6)
  - Cerebrovascular accident [Unknown]
  - Injection site reaction [Unknown]
  - Cardiac disorder [Unknown]
  - Injection site pain [Unknown]
  - Urinary tract infection [Unknown]
  - Contusion [Not Recovered/Not Resolved]
